FAERS Safety Report 9362122 (Version 1)
Quarter: 2013Q2

REPORT INFORMATION
  Report Type: Spontaneous
  Country: US (occurrence: US)
  Receive Date: 20130621
  Receipt Date: 20130621
  Transmission Date: 20140414
  Serious: Yes (Hospitalization)
  Sender: FDA-Public Use
  Company Number: US-LUNDBECK-DKLU1091450

PATIENT
  Age: 14 Year
  Sex: Female
  Weight: 45 kg

DRUGS (19)
  1. ONFI [Suspect]
     Indication: CONVULSION
     Route: 048
  2. ONFI [Suspect]
     Route: 048
  3. ONFI [Suspect]
     Route: 048
  4. ONFI [Suspect]
     Route: 048
  5. ONFI [Suspect]
     Route: 048
  6. PHENOBARBITAL [Suspect]
     Indication: CONVULSION
     Route: 048
  7. TRILEPTAL [Suspect]
     Indication: CONVULSION
     Route: 048
     Dates: start: 20130214
  8. TRILEPTAL [Suspect]
     Route: 048
     Dates: start: 20120925
  9. TRILEPTAL [Suspect]
     Route: 048
  10. TRILEPTAL [Suspect]
     Route: 048
  11. ATIVAN [Suspect]
     Indication: ANXIETY
     Route: 048
  12. KLONOPIN [Concomitant]
     Indication: PRODUCT USED FOR UNKNOWN INDICATION
     Route: 048
  13. VIMPAT [Concomitant]
     Indication: PRODUCT USED FOR UNKNOWN INDICATION
     Route: 048
  14. VIMPAT [Concomitant]
     Route: 048
  15. CELEXA [Concomitant]
     Indication: DEPRESSION
     Route: 048
  16. VERSED [Concomitant]
     Indication: CONVULSION
     Route: 050
     Dates: start: 20130214
  17. BENADRYL [Concomitant]
     Indication: PRURITUS
     Route: 048
  18. ALLEGRA [Concomitant]
     Indication: PRODUCT USED FOR UNKNOWN INDICATION
     Route: 050
  19. HYDROCORTISONE [Concomitant]
     Indication: PRODUCT USED FOR UNKNOWN INDICATION
     Route: 050

REACTIONS (10)
  - Pharyngitis [Recovering/Resolving]
  - Lymphadenopathy [Recovering/Resolving]
  - Folliculitis [Unknown]
  - Pruritus [Recovering/Resolving]
  - Depression [Recovering/Resolving]
  - Suicidal behaviour [Recovering/Resolving]
  - Convulsion [Recovering/Resolving]
  - Lethargy [Unknown]
  - Rash erythematous [Recovered/Resolved]
  - Somnolence [Unknown]
